FAERS Safety Report 14105692 (Version 2)
Quarter: 2017Q4

REPORT INFORMATION
  Report Type: Spontaneous
  Country: US (occurrence: US)
  Receive Date: 20171018
  Receipt Date: 20171213
  Transmission Date: 20180321
  Serious: No
  Sender: FDA-Public Use
  Company Number: US-BIOGEN-2017BI00472819

PATIENT
  Age: 64 Year
  Sex: Female

DRUGS (1)
  1. ZINBRYTA [Suspect]
     Active Substance: DACLIZUMAB
     Indication: MULTIPLE SCLEROSIS
     Route: 058
     Dates: start: 20171003

REACTIONS (3)
  - Fatigue [Not Recovered/Not Resolved]
  - Pain [Unknown]
  - Hypersomnia [Unknown]

NARRATIVE: CASE EVENT DATE: 20171017
